FAERS Safety Report 6670326-X (Version None)
Quarter: 2010Q2

REPORT INFORMATION
  Report Type: 
  Country: None (occurrence: None)
  Receive Date: 20100405
  Receipt Date: 20100329
  Transmission Date: 20101027
  Serious: Yes (Other)
  Sender: FDA-Public Use
  Company Number: 2009SP038281

PATIENT
  Age: 20 Year
  Sex: Female

DRUGS (8)
  1. MIRTAZAPINE [Suspect]
     Indication: DEPRESSION
     Dosage: 15 MG;QD;PO
     Route: 048
     Dates: start: 20090919, end: 20091022
  2. ZOLPIDEM TARTRATE [Concomitant]
  3. MILNACIPRAN [Concomitant]
  4. AMOXAPINE [Concomitant]
  5. SERTRALINE HYDROCHLORIDE [Concomitant]
  6. SETIPTILINE MALEATE [Concomitant]
  7. DOGMATYL [Concomitant]
  8. ZOLPIDEM TARTRATE [Concomitant]

REACTIONS (5)
  - ACTIVATION SYNDROME [None]
  - ANGER [None]
  - IMPULSIVE BEHAVIOUR [None]
  - INSOMNIA [None]
  - SUICIDAL IDEATION [None]
